FAERS Safety Report 19805349 (Version 1)
Quarter: 2021Q3

REPORT INFORMATION
  Report Type: Report from Study
  Country: GB (occurrence: GB)
  Receive Date: 20210908
  Receipt Date: 20210908
  Transmission Date: 20211014
  Serious: Yes (Other)
  Sender: FDA-Public Use
  Company Number: GB-MYLANLABS-2021M1059424

PATIENT
  Age: 47 Year
  Sex: Female

DRUGS (2)
  1. RAMIPRIL. [Suspect]
     Active Substance: RAMIPRIL
     Indication: MYOCARDIAL INFARCTION
     Dosage: 2.25 MG
     Route: 048
     Dates: start: 2019
  2. RAMIPRIL. [Suspect]
     Active Substance: RAMIPRIL
     Indication: IGA NEPHROPATHY
     Dosage: 1.25 MG
     Route: 048

REACTIONS (3)
  - Feeling abnormal [Recovered/Resolved]
  - Renal pain [Recovered/Resolved]
  - Drug intolerance [Recovered/Resolved]

NARRATIVE: CASE EVENT DATE: 2021
